FAERS Safety Report 5135577-4 (Version None)
Quarter: 2006Q4

REPORT INFORMATION
  Report Type: 
  Country: None (occurrence: None)
  Receive Date: 20061020
  Receipt Date: 20061009
  Transmission Date: 20070319
  Serious: Yes (Death, Life-Threatening, Other)
  Sender: FDA-Public Use
  Company Number: 2006044140

PATIENT
  Age: 36 Year
  Sex: Female

DRUGS (4)
  1. NEURONTIN [Suspect]
     Indication: AFFECTIVE DISORDER
     Dosage: 300 MG (1 IN 1 D)
     Dates: start: 20000101, end: 20020423
  2. NEURONTIN [Suspect]
     Indication: ANXIETY
     Dosage: 300 MG (1 IN 1 D)
     Dates: start: 20000101, end: 20020423
  3. NEURONTIN [Suspect]
     Indication: PAIN
     Dosage: 300 MG (1 IN 1 D)
     Dates: start: 20000101, end: 20020423
  4. TRAZODONE HCL [Concomitant]

REACTIONS (16)
  - ABDOMINAL INJURY [None]
  - AGITATION [None]
  - AMNESIA [None]
  - ANOREXIA [None]
  - ANXIETY [None]
  - CHEST INJURY [None]
  - COMPLETED SUICIDE [None]
  - CONDITION AGGRAVATED [None]
  - DEPRESSION [None]
  - DRUG INEFFECTIVE [None]
  - HEAD INJURY [None]
  - INJURY [None]
  - INSOMNIA [None]
  - IRRITABILITY [None]
  - SELF INJURIOUS BEHAVIOUR [None]
  - SUICIDAL IDEATION [None]
